FAERS Safety Report 18310166 (Version 2)
Quarter: 2020Q4

REPORT INFORMATION
  Report Type: Spontaneous
  Country: US (occurrence: US)
  Receive Date: 20200924
  Receipt Date: 20201008
  Transmission Date: 20210113
  Serious: No
  Sender: FDA-Public Use
  Company Number: US-ASTRAZENECA-2020SE81442

PATIENT
  Sex: Female
  Weight: 69.4 kg

DRUGS (6)
  1. PERCOCET [Concomitant]
     Active Substance: ACETAMINOPHEN\OXYCODONE HYDROCHLORIDE
     Indication: BOWEL MOVEMENT IRREGULARITY
     Dosage: 3 TIMES A DAY FOR YEARS
     Route: 065
  2. PERCOCET [Concomitant]
     Active Substance: ACETAMINOPHEN\OXYCODONE HYDROCHLORIDE
     Indication: CONSTIPATION
     Dosage: 3 TIMES A DAY FOR YEARS
     Route: 065
  3. PERCOCET [Concomitant]
     Active Substance: ACETAMINOPHEN\OXYCODONE HYDROCHLORIDE
     Dosage: NOW DOWN TO TAKING PERCOCET ONCE A DAY OR EVERY OTHER DAY
     Route: 065
  4. MOVANTIK [Suspect]
     Active Substance: NALOXEGOL OXALATE
     Indication: BACK DISORDER
     Dosage: 25 MG IN MORNING, 1 HOUR BEFORE BREAKFAST, DAILY
     Route: 048
     Dates: start: 20200622
  5. MIRALAX [Concomitant]
     Active Substance: POLYETHYLENE GLYCOL 3350
     Indication: BOWEL MOVEMENT IRREGULARITY
     Dosage: UNKNOWN
     Route: 065
  6. PERCOCET [Concomitant]
     Active Substance: ACETAMINOPHEN\OXYCODONE HYDROCHLORIDE
     Dosage: NOW DOWN TO TAKING PERCOCET ONCE A DAY OR EVERY OTHER DAY
     Route: 065

REACTIONS (1)
  - Drug ineffective [Unknown]
